FAERS Safety Report 9733741 (Version 1)
Quarter: 2013Q4

REPORT INFORMATION
  Report Type: Spontaneous
  Country: US (occurrence: US)
  Receive Date: 20131205
  Receipt Date: 20131205
  Transmission Date: 20140711
  Serious: No
  Sender: FDA-Public Use
  Company Number: US-BAYER-2013-147705

PATIENT
  Age: 58 Year
  Sex: Female
  Weight: 58.96 kg

DRUGS (7)
  1. CIPRO [Suspect]
     Indication: URINARY TRACT INFECTION
     Dosage: UNK
     Dates: start: 2013, end: 2013
  2. CEFTIN [Suspect]
     Indication: URINARY TRACT INFECTION
     Dosage: UNK
     Dates: start: 2013, end: 2013
  3. LEVAQUIN [Suspect]
     Indication: URINARY TRACT INFECTION
     Dosage: UNK
     Dates: start: 2013, end: 2013
  4. TOPAMAX [Concomitant]
     Indication: MIGRAINE
     Dosage: 100 MG, BID
  5. NADOLOL [Concomitant]
     Indication: MIGRAINE
     Dosage: 20 MG, QD
  6. ZANTAC [Concomitant]
     Indication: GASTRIC DISORDER
     Dosage: 150 MG, BID
  7. MOBIC [Concomitant]
     Indication: ARTHRITIS
     Dosage: 75 MG, BID

REACTIONS (1)
  - Drug ineffective [Unknown]
